FAERS Safety Report 19669962 (Version 1)
Quarter: 2021Q3

REPORT INFORMATION
  Report Type: Report from Study
  Country: US (occurrence: US)
  Receive Date: 20210806
  Receipt Date: 20210806
  Transmission Date: 20211014
  Serious: Yes (Death)
  Sender: FDA-Public Use
  Company Number: US-PFIZER INC-202101006822

PATIENT

DRUGS (2)
  1. FLUDARABINE PHOSPHATE. [Suspect]
     Active Substance: FLUDARABINE PHOSPHATE
     Indication: HAEMATOLOGICAL MALIGNANCY
     Dosage: 30 MG/M2, 1X/DAY (FROM DAY ?6 TO ?2))
  2. MELPHALAN. [Suspect]
     Active Substance: MELPHALAN
     Indication: HAEMATOLOGICAL MALIGNANCY
     Dosage: 140 MG/M2, 1X/DAY(ON DAY ?2)

REACTIONS (1)
  - Toxicity to various agents [Fatal]
